FAERS Safety Report 8812298 (Version 2)
Quarter: 2015Q1

REPORT INFORMATION
  Report Type: Report from Study
  Country: US (occurrence: US)
  Receive Date: 20120927
  Receipt Date: 20150321
  Transmission Date: 20150721
  Serious: Yes (Death, Hospitalization)
  Sender: FDA-Public Use
  Company Number: US-ROCHE-1123394

PATIENT
  Sex: Male
  Weight: 73 kg

DRUGS (7)
  1. AVASTIN [Suspect]
     Active Substance: BEVACIZUMAB
     Indication: RENAL CANCER
     Dosage: IN 100 CC NORMAL SALINE FOR OVER 30 MINS, HAD BEVACIZUMAB ON 16/JUL/2008, 05/AUG/2008, 26/AUG/2008,1
     Route: 042
     Dates: start: 20080716
  2. SUTENT [Concomitant]
     Active Substance: SUNITINIB MALATE
  3. SORAFENIB [Concomitant]
     Active Substance: SORAFENIB
     Route: 065
  4. SORAFENIB [Concomitant]
     Active Substance: SORAFENIB
     Route: 065
  5. TORISEL [Concomitant]
     Active Substance: TEMSIROLIMUS
     Dosage: 4 CYCLE
     Route: 065
  6. INTRON-A [Concomitant]
  7. IL-2 [Concomitant]
     Active Substance: ALDESLEUKIN

REACTIONS (17)
  - Disease progression [Unknown]
  - Dyspnoea [Unknown]
  - Asthenia [Unknown]
  - Metastases to testicle [Unknown]
  - Hypophagia [Unknown]
  - Neuropathy peripheral [Unknown]
  - Dizziness [Unknown]
  - Off label use [Unknown]
  - Death [Fatal]
  - Fatigue [Unknown]
  - Back pain [Unknown]
  - Weight decreased [Unknown]
  - Obstructive airways disorder [Unknown]
  - Stomatitis [Unknown]
  - Nausea [Unknown]
  - Constipation [Unknown]
  - Flank pain [Unknown]
